FAERS Safety Report 22688008 (Version 5)
Quarter: 2024Q3

REPORT INFORMATION
  Report Type: Report from Study
  Country: US (occurrence: US)
  Receive Date: 20230710
  Receipt Date: 20240724
  Transmission Date: 20241016
  Serious: Yes (Hospitalization, Other)
  Sender: TAKEDA
  Company Number: US-TAKEDA-US202009684

PATIENT
  Sex: Female

DRUGS (2)
  1. HUMAN IMMUNOGLOBULIN G [Suspect]
     Active Substance: HUMAN IMMUNOGLOBULIN G
     Indication: Immunodeficiency common variable
     Dosage: 30 GRAM, Q3WEEKS
     Route: 042
  2. HUMAN IMMUNOGLOBULIN G [Suspect]
     Active Substance: HUMAN IMMUNOGLOBULIN G
     Indication: Primary immunodeficiency syndrome
     Dosage: UNK
     Route: 042

REACTIONS (12)
  - Road traffic accident [Unknown]
  - Sternal fracture [Unknown]
  - Ear infection [Unknown]
  - Urinary tract infection [Unknown]
  - COVID-19 [Unknown]
  - Respiratory tract infection [Recovering/Resolving]
  - Dermal cyst [Unknown]
  - Migraine [Unknown]
  - Depression [Unknown]
  - Osteoporosis [Unknown]
  - Corneal abrasion [Unknown]
  - Inappropriate schedule of product administration [Unknown]
